FAERS Safety Report 12013310 (Version 1)
Quarter: 2016Q1

REPORT INFORMATION
  Report Type: Spontaneous
  Country: US (occurrence: US)
  Receive Date: 20160205
  Receipt Date: 20160205
  Transmission Date: 20160526
  Serious: Yes (Other)
  Sender: FDA-Public Use
  Company Number: US-BIOGEN-2016BI00184435

PATIENT
  Sex: Female
  Weight: 1.59 kg

DRUGS (1)
  1. TYSABRI [Suspect]
     Active Substance: NATALIZUMAB
     Indication: MATERNAL EXPOSURE TIMING UNSPECIFIED
     Route: 064
     Dates: start: 20120315, end: 20140327

REACTIONS (2)
  - Low birth weight baby [Recovered/Resolved]
  - Foetal exposure timing unspecified [Recovered/Resolved]
